FAERS Safety Report 8444701-7 (Version None)
Quarter: 2012Q2

REPORT INFORMATION
  Report Type: 
  Country: None (occurrence: None)
  Receive Date: 20120618
  Receipt Date: 20120612
  Transmission Date: 20120825
  Serious: Yes (Death, Hospitalization)
  Sender: FDA-Public Use
  Company Number: CN-SANOFI-AVENTIS-2012SA041719

PATIENT
  Age: 54 Year
  Sex: Female
  Weight: 51 kg

DRUGS (4)
  1. DOCETAXEL [Suspect]
     Route: 041
     Dates: start: 20110216, end: 20110216
  2. CISPLATIN [Suspect]
     Route: 065
     Dates: start: 20101015, end: 20101015
  3. DOCETAXEL [Suspect]
     Indication: NON-SMALL CELL LUNG CANCER
     Route: 041
     Dates: start: 20100812, end: 20100812
  4. CISPLATIN [Suspect]
     Indication: NON-SMALL CELL LUNG CANCER
     Route: 065
     Dates: start: 20100812, end: 20100812

REACTIONS (1)
  - CEREBRAL INFARCTION [None]
